FAERS Safety Report 7963662-8 (Version None)
Quarter: 2011Q4

REPORT INFORMATION
  Report Type: 
  Country: None (occurrence: None)
  Receive Date: 20111122
  Receipt Date: 20110823
  Transmission Date: 20120403
  Serious: No
  Sender: FDA-Public Use
  Company Number: PHHY2011US55702

PATIENT
  Age: 54 Year
  Sex: Female

DRUGS (11)
  1. MELOXICAM [Concomitant]
  2. NORVASC [Concomitant]
  3. GILENYA [Suspect]
     Indication: MULTIPLE SCLEROSIS
     Dosage: 0.5 MG, QD, ORAL
     Route: 048
     Dates: start: 20110422
  4. CLONAZEPAM [Concomitant]
  5. RELPAX [Concomitant]
  6. PAROXETINE HCL [Concomitant]
  7. DALIVIT (ASCORBIC ACID, CALCIUM PANTOTHENATE, ERGOCALCIFEROL, NICOTINA [Concomitant]
  8. ESTRACE [Concomitant]
  9. UNIVASC [Concomitant]
  10. ATENOLOL [Concomitant]
  11. ZEGERID [Concomitant]

REACTIONS (1)
  - TREMOR [None]
